FAERS Safety Report 6770066-2 (Version None)
Quarter: 2010Q2

REPORT INFORMATION
  Report Type: 
  Country: None (occurrence: None)
  Receive Date: 20100615
  Receipt Date: 20100613
  Transmission Date: 20101027
  Serious: Yes (Other)
  Sender: FDA-Public Use
  Company Number: US-JNJFOC-20090904651

PATIENT
  Sex: Female
  Weight: 86.18 kg

DRUGS (1)
  1. LEVAQUIN [Suspect]
     Indication: BACTERIAL INFECTION
     Route: 048

REACTIONS (5)
  - CARPAL TUNNEL SYNDROME [None]
  - KNEE ARTHROPLASTY [None]
  - RASH [None]
  - ROTATOR CUFF REPAIR [None]
  - TENDON INJURY [None]
